FAERS Safety Report 5065207-1 (Version None)
Quarter: 2006Q3

REPORT INFORMATION
  Report Type: 
  Country: None (occurrence: None)
  Receive Date: 20060727
  Receipt Date: 20060727
  Transmission Date: 20061208
  Serious: Yes (Disabling)
  Sender: FDA-Public Use
  Company Number: None

PATIENT
  Age: 61 Year
  Sex: Female
  Weight: 81.6475 kg

DRUGS (1)
  1. ADVAIR DISKUS 250/50 [Suspect]
     Indication: ASTHMA
     Dosage: FULL INHALATION   MORNING AND BEDTIME
     Dates: start: 20060207, end: 20060726

REACTIONS (10)
  - DYSPHONIA [None]
  - EAR PAIN [None]
  - ODYNOPHAGIA [None]
  - ORAL DISCOMFORT [None]
  - ORAL FUNGAL INFECTION [None]
  - PHARYNGOLARYNGEAL PAIN [None]
  - RHINALGIA [None]
  - SENSATION OF FOREIGN BODY [None]
  - STOMATITIS [None]
  - TONGUE ULCERATION [None]
